FAERS Safety Report 7916638 (Version 3)
Quarter: 2012Q4

REPORT INFORMATION
  Report Type: 
  Country: US (occurrence: US)
  Receive Date: 20110427
  Receipt Date: 20121115
  Transmission Date: 20130627
  Serious: Yes (Hospitalization)
  Sender: FDA-Public Use
  Company Number: US-ASTRAZENECA-2011SE22363

PATIENT
  Age: 75 Year
  Sex: Female

DRUGS (1)
  1. SEROQUEL XR [Suspect]
     Indication: BIPOLAR DISORDER
     Route: 048

REACTIONS (5)
  - Osteomyelitis [Unknown]
  - Malaise [Unknown]
  - Feeling abnormal [Unknown]
  - Conversion disorder [Unknown]
  - Drug dose omission [Unknown]
